FAERS Safety Report 9341453 (Version 1)
Quarter: 2013Q2

REPORT INFORMATION
  Report Type: Spontaneous
  Country: US (occurrence: None)
  Receive Date: 20130610
  Receipt Date: 20130610
  Transmission Date: 20140414
  Serious: Yes (Life-Threatening, Hospitalization)
  Sender: FDA-Public Use
  Company Number: None

PATIENT
  Sex: Male
  Weight: 73.94 kg

DRUGS (1)
  1. TIROSINT [Suspect]
     Indication: HYPOTHYROIDISM
     Route: 048
     Dates: start: 201302

REACTIONS (19)
  - Frequent bowel movements [None]
  - Insomnia [None]
  - Visual impairment [None]
  - Dyspnoea [None]
  - Pruritus [None]
  - Palpitations [None]
  - Nervousness [None]
  - Mood swings [None]
  - Psychotic disorder [None]
  - Temperature intolerance [None]
  - Hyperhidrosis [None]
  - Heart rate increased [None]
  - Blood pressure increased [None]
  - Tremor [None]
  - Weight decreased [None]
  - Pain [None]
  - Tinnitus [None]
  - Dysphagia [None]
  - Hunger [None]
